FAERS Safety Report 7576564-6 (Version None)
Quarter: 2011Q2

REPORT INFORMATION
  Report Type: 
  Country: None (occurrence: None)
  Receive Date: 20110628
  Receipt Date: 20110204
  Transmission Date: 20111010
  Serious: Yes (Hospitalization, Other)
  Sender: FDA-Public Use
  Company Number: US-BAYER-201033528NA

PATIENT
  Age: 21 Year
  Sex: Female
  Weight: 68.027 kg

DRUGS (2)
  1. YAZ [Suspect]
     Dosage: UNK
  2. YAZ [Suspect]
     Indication: CONTRACEPTION
     Dosage: UNK
     Route: 048
     Dates: start: 20070101, end: 20080901

REACTIONS (8)
  - GALLBLADDER CHOLESTEROLOSIS [None]
  - DYSPEPSIA [None]
  - CHOLECYSTITIS CHRONIC [None]
  - BILIARY DYSKINESIA [None]
  - GALLBLADDER DISORDER [None]
  - ABDOMINAL PAIN UPPER [None]
  - PROCEDURAL PAIN [None]
  - CHOLECYSTECTOMY [None]
